FAERS Safety Report 9140895 (Version 1)
Quarter: 2013Q1

REPORT INFORMATION
  Report Type: Spontaneous
  Country: US (occurrence: US)
  Receive Date: 20130305
  Receipt Date: 20130305
  Transmission Date: 20140127
  Serious: Yes (Death)
  Sender: FDA-Public Use
  Company Number: PHHY2013US021152

PATIENT
  Age: 60 Year
  Sex: Male

DRUGS (2)
  1. ASCRIPTIN BUFFERED CAPS UNKNOWN FORMULA [Suspect]
     Indication: ANTICOAGULANT THERAPY
     Dosage: 1 DF, PER DAY
     Dates: start: 1984, end: 2004
  2. ASCRIPTIN BUFFERED CAPS UNKNOWN FORMULA [Suspect]
     Indication: PAIN

REACTIONS (2)
  - Death [Fatal]
  - Incorrect drug administration duration [Unknown]
